FAERS Safety Report 9416369 (Version 18)
Quarter: 2025Q2

REPORT INFORMATION
  Report Type: Spontaneous
  Country: US (occurrence: US)
  Receive Date: 20130724
  Receipt Date: 20250505
  Transmission Date: 20250716
  Serious: No
  Sender: PFIZER
  Company Number: US-PFIZER INC-2013212405

PATIENT
  Age: 51 Year
  Sex: Female
  Weight: 52 kg

DRUGS (36)
  1. PREMARIN [Interacting]
     Active Substance: ESTROGENS, CONJUGATED
     Indication: Hormone replacement therapy
     Dosage: 1.25 MG, DAILY
     Dates: start: 1980
  2. PREMARIN [Interacting]
     Active Substance: ESTROGENS, CONJUGATED
     Indication: Artificial menopause
     Dosage: 1.25 MG, 1X/DAY
     Route: 048
     Dates: start: 1983
  3. PREMARIN [Interacting]
     Active Substance: ESTROGENS, CONJUGATED
     Dosage: 1.25 MG, 1X/DAY
     Route: 048
  4. PREMARIN [Interacting]
     Active Substance: ESTROGENS, CONJUGATED
     Dosage: 1.25 MG, 1X/DAY
     Route: 048
  5. PREMARIN [Interacting]
     Active Substance: ESTROGENS, CONJUGATED
     Dosage: 1.25 MG, 1X/DAY
     Route: 048
  6. PREMARIN [Interacting]
     Active Substance: ESTROGENS, CONJUGATED
     Dosage: 1.25 MG, 1X/DAY
     Route: 048
  7. PREMARIN [Interacting]
     Active Substance: ESTROGENS, CONJUGATED
     Dosage: 0.625 MG, 2X/DAY
     Route: 048
  8. PREMARIN [Interacting]
     Active Substance: ESTROGENS, CONJUGATED
     Dosage: 1.25MG, DAILY
  9. PREMARIN [Interacting]
     Active Substance: ESTROGENS, CONJUGATED
     Dosage: 1.25 MG, DAILY
  10. PREMARIN [Interacting]
     Active Substance: ESTROGENS, CONJUGATED
     Dosage: 1.25 MG, 1X/DAY
     Route: 048
  11. PREMARIN [Interacting]
     Active Substance: ESTROGENS, CONJUGATED
  12. PREMARIN [Interacting]
     Active Substance: ESTROGENS, CONJUGATED
     Route: 048
  13. PREMARIN [Interacting]
     Active Substance: ESTROGENS, CONJUGATED
  14. PREMARIN [Interacting]
     Active Substance: ESTROGENS, CONJUGATED
     Route: 048
     Dates: start: 1985
  15. PREMARIN [Interacting]
     Active Substance: ESTROGENS, CONJUGATED
     Dosage: 1.25 MG, 1X/DAY
     Route: 048
  16. PREMARIN [Interacting]
     Active Substance: ESTROGENS, CONJUGATED
     Dosage: 1.25 MG, 1X/DAY
     Route: 048
  17. PREMARIN [Interacting]
     Active Substance: ESTROGENS, CONJUGATED
     Dosage: 1.25 MG, 1X/DAY
     Route: 048
  18. PREMARIN [Interacting]
     Active Substance: ESTROGENS, CONJUGATED
     Dosage: 1.25 MG, 1X/DAY
     Route: 048
  19. PREMARIN [Interacting]
     Active Substance: ESTROGENS, CONJUGATED
     Dosage: 1.25 MG, 1X/DAY
     Route: 048
  20. PREMARIN [Interacting]
     Active Substance: ESTROGENS, CONJUGATED
  21. PREMARIN [Interacting]
     Active Substance: ESTROGENS, CONJUGATED
  22. PREMARIN [Interacting]
     Active Substance: ESTROGENS, CONJUGATED
  23. SYNTHROID [Interacting]
     Active Substance: LEVOTHYROXINE SODIUM
     Indication: Hypothyroidism
     Dosage: 100 UG , 1X/DAY
     Route: 048
     Dates: start: 1983
  24. SYNTHROID [Interacting]
     Active Substance: LEVOTHYROXINE SODIUM
     Indication: Hormone replacement therapy
  25. SYNTHROID [Interacting]
     Active Substance: LEVOTHYROXINE SODIUM
     Dosage: 88 UG, DAILY
  26. SYNTHROID [Interacting]
     Active Substance: LEVOTHYROXINE SODIUM
     Dosage: 100 UG, DAILY
     Route: 048
  27. ASPIRIN [Concomitant]
     Active Substance: ASPIRIN
     Indication: Prophylaxis
     Dosage: 81 MG, 1X/DAY
     Route: 048
  28. VOLTAREN [Concomitant]
     Active Substance: DICLOFENAC SODIUM
     Indication: Arthritis
     Route: 061
     Dates: start: 2007
  29. CLONAZEPAM [Concomitant]
     Active Substance: CLONAZEPAM
     Indication: Nervous system disorder
     Dosage: 1 MG, 1X/DAY
  30. CLONAZEPAM [Concomitant]
     Active Substance: CLONAZEPAM
     Indication: Muscle spasms
  31. EVENING PRIMROSE OIL\HERBALS [Concomitant]
     Active Substance: EVENING PRIMROSE OIL\HERBALS
     Indication: Arthritis
     Dosage: 1300 MG, 1X/DAY
     Dates: start: 2010
  32. NAPROXEN SODIUM [Concomitant]
     Active Substance: NAPROXEN SODIUM
     Indication: Arthritis
     Dates: start: 2007
  33. KETOCONAZOLE [Concomitant]
     Active Substance: KETOCONAZOLE
     Indication: Skin disorder
  34. FLUTICASONE PROPIONATE [Concomitant]
     Active Substance: FLUTICASONE PROPIONATE
     Indication: Hypersensitivity
     Route: 045
  35. ROSUVASTATIN CALCIUM [Concomitant]
     Active Substance: ROSUVASTATIN CALCIUM
  36. PREMARIN [Concomitant]
     Active Substance: ESTROGENS, CONJUGATED

REACTIONS (46)
  - Drug ineffective [Not Recovered/Not Resolved]
  - Allergy to plants [Unknown]
  - Seasonal allergy [Unknown]
  - Rash macular [Not Recovered/Not Resolved]
  - Sleep disorder [Recovered/Resolved]
  - Vulvovaginal dryness [Recovered/Resolved]
  - Vulvovaginal pain [Not Recovered/Not Resolved]
  - Nervous system disorder [Not Recovered/Not Resolved]
  - Condition aggravated [Not Recovered/Not Resolved]
  - Amnesia [Unknown]
  - Disturbance in attention [Recovered/Resolved]
  - Depressed mood [Unknown]
  - Screaming [Unknown]
  - Abnormal behaviour [Unknown]
  - Feeling abnormal [Unknown]
  - Myalgia [Unknown]
  - Inflammation [Unknown]
  - Dry skin [Recovered/Resolved]
  - Drug interaction [Unknown]
  - Gastrointestinal disorder [Unknown]
  - Peripheral swelling [Not Recovered/Not Resolved]
  - Muscular weakness [Not Recovered/Not Resolved]
  - Circadian rhythm sleep disorder [Unknown]
  - Arthralgia [Unknown]
  - Speech disorder [Unknown]
  - Mood altered [Unknown]
  - Pollakiuria [Unknown]
  - Urinary tract infection [Unknown]
  - Dry mouth [Unknown]
  - Dry eye [Unknown]
  - Oestradiol decreased [Unknown]
  - Oestrone decreased [Unknown]
  - Blood testosterone increased [Unknown]
  - Hyperoxaluria [Unknown]
  - Functional gastrointestinal disorder [Unknown]
  - Rash [Unknown]
  - Body height decreased [Unknown]
  - Alopecia [Unknown]
  - Renal disorder [Unknown]
  - Food interaction [Unknown]
  - Off label use [Unknown]
  - Suspected counterfeit product [Not Recovered/Not Resolved]
  - Poor quality product administered [Not Recovered/Not Resolved]
  - Product shape issue [Unknown]
  - Product physical consistency issue [Unknown]
  - Product dispensing error [Unknown]

NARRATIVE: CASE EVENT DATE: 20030101
